FAERS Safety Report 18251447 (Version 2)
Quarter: 2020Q3

REPORT INFORMATION
  Report Type: Spontaneous
  Country: BE (occurrence: BE)
  Receive Date: 20200910
  Receipt Date: 20200917
  Transmission Date: 20201103
  Serious: Yes (Death, Life-Threatening, Hospitalization, Other)
  Sender: FDA-Public Use
  Company Number: BE-GILEAD-2020-0494214

PATIENT
  Age: 76 Year
  Sex: Female
  Weight: 82 kg

DRUGS (1)
  1. ZYDELIG [Suspect]
     Active Substance: IDELALISIB
     Indication: B-CELL LYMPHOMA
     Dosage: 150 MG, UNK
     Route: 065

REACTIONS (3)
  - Infection [Fatal]
  - Pancytopenia [Fatal]
  - Disease progression [Fatal]

NARRATIVE: CASE EVENT DATE: 20200628
